FAERS Safety Report 16781627 (Version 2)
Quarter: 2019Q4

REPORT INFORMATION
  Report Type: Spontaneous
  Country: US (occurrence: US)
  Receive Date: 20190906
  Receipt Date: 20191021
  Transmission Date: 20200122
  Serious: Yes (Hospitalization, Other)
  Sender: FDA-Public Use
  Company Number: US-AMAG PHARMACEUTICALS, INC.-AMAG201904591

PATIENT
  Age: 56 Year
  Sex: Female
  Weight: 46.31 kg

DRUGS (1)
  1. INTRAROSA [Suspect]
     Active Substance: PRASTERONE
     Indication: ATROPHIC VULVOVAGINITIS
     Dosage: 6.5MG, DAILY
     Route: 067
     Dates: start: 20190816, end: 20190825

REACTIONS (10)
  - Vaginal haemorrhage [Recovered/Resolved]
  - Major depression [Unknown]
  - Weight decreased [Unknown]
  - Affect lability [Unknown]
  - Malnutrition [Unknown]
  - Dizziness [Unknown]
  - Anaemia [Unknown]
  - Gastrointestinal haemorrhage [Unknown]
  - Abdominal pain upper [Unknown]
  - Off label use [Unknown]

NARRATIVE: CASE EVENT DATE: 20190816
